FAERS Safety Report 21973256 (Version 1)
Quarter: 2023Q1

REPORT INFORMATION
  Report Type: Spontaneous
  Country: US (occurrence: US)
  Receive Date: 20230209
  Receipt Date: 20230209
  Transmission Date: 20230418
  Serious: Yes (Other)
  Sender: FDA-Public Use
  Company Number: US-SA-SAC20230207000452

PATIENT
  Age: 39 Year
  Sex: Female

DRUGS (1)
  1. AUBAGIO [Suspect]
     Active Substance: TERIFLUNOMIDE
     Indication: Multiple sclerosis
     Dosage: 14 MG, QD
     Route: 048
     Dates: start: 20220720

REACTIONS (6)
  - Multiple sclerosis relapse [Unknown]
  - Gait disturbance [Unknown]
  - Migraine [Unknown]
  - Memory impairment [Unknown]
  - Fall [Unknown]
  - Depressed mood [Unknown]

NARRATIVE: CASE EVENT DATE: 20230101
